FAERS Safety Report 7722073-0 (Version None)
Quarter: 2011Q3

REPORT INFORMATION
  Report Type: 
  Country: None (occurrence: None)
  Receive Date: 20110825
  Receipt Date: 20110816
  Transmission Date: 20111222
  Serious: No
  Sender: FDA-Public Use
  Company Number: 15707383

PATIENT
  Age: 52 Year
  Sex: Male

DRUGS (10)
  1. AMARIL D (PHENYLT+PHENYLPR+PHENNYLEP+CHO) [Concomitant]
  2. DETRALEX (DIOSMIN + HESPERIDIN) [Concomitant]
  3. OMEZ (OMEPRAZOLE) [Concomitant]
  4. PLACEBO [Suspect]
     Indication: EMBOLISM
     Dates: start: 20110415
  5. APIXABAN [Suspect]
     Indication: EMBOLISM
     Dosage: 10 MILLIGRAM 1 DAY, ORAL
     Route: 048
     Dates: start: 20110415, end: 20110606
  6. BETALOC ZOK (METROPROLOL SUCCINATE) [Concomitant]
  7. WARFARIN SODIUM [Suspect]
     Indication: EMBOLISM
     Dosage: 1 DOSAGE FORM 1 DAY, ORAL
     Route: 048
     Dates: start: 20110415, end: 20110606
  8. METFORMIN HCL [Suspect]
  9. ENOXAPARIN SODIUM [Suspect]
     Indication: EMBOLISM
     Dosage: 1.5 MILLILITER 1 DAY, SC
     Route: 058
     Dates: start: 20110415, end: 20110421
  10. ASPENTER (ACETYLSALICYCLIC ACID) [Concomitant]

REACTIONS (1)
  - JUGULAR VEIN THROMBOSIS [None]
